FAERS Safety Report 6591060-0 (Version None)
Quarter: 2010Q1

REPORT INFORMATION
  Report Type: 
  Country: None (occurrence: None)
  Receive Date: 20100219
  Receipt Date: 20100211
  Transmission Date: 20100710
  Serious: Yes (Other)
  Sender: FDA-Public Use
  Company Number: US-BAYER-201013710NA

PATIENT
  Age: 57 Year
  Sex: Female

DRUGS (2)
  1. ULTRAVIST 300 [Suspect]
     Indication: DRUG USE FOR UNKNOWN INDICATION
     Dates: start: 20100211, end: 20100211
  2. BENADRYL [Concomitant]
     Dates: start: 20100211, end: 20100211

REACTIONS (2)
  - CONVULSION [None]
  - NAUSEA [None]
